FAERS Safety Report 9990441 (Version 1)
Quarter: 2014Q1

REPORT INFORMATION
  Report Type: Spontaneous
  Country: US (occurrence: None)
  Receive Date: 20140123
  Receipt Date: 20140123
  Transmission Date: 20141002
  Serious: Yes (Hospitalization)
  Sender: FDA-Public Use
  Company Number: UTC-035635

PATIENT
  Age: 23 Year
  Sex: Female
  Weight: 65 kg

DRUGS (3)
  1. REMODULIN [Suspect]
     Indication: PULMONARY ARTERIAL HYPERTENSION
     Dosage: 100.8 UG/KG (0.07 UG/KG,  1 IN 1 MIN , INJECTION FOR INFUSTION THERAPY DATES 16APR2011 ONGOING THERAPY  DATES
     Dates: start: 20110416
  2. COUMADIN (WARFARIN SODIUM) [Concomitant]
  3. TRACLEER (BOSENTAN) [Concomitant]

REACTIONS (1)
  - Device related infection [None]
